FAERS Safety Report 8974157 (Version 5)
Quarter: 2014Q3

REPORT INFORMATION
  Report Type: Spontaneous
  Country: TR (occurrence: None)
  Receive Date: 20121210
  Receipt Date: 20140811
  Transmission Date: 20150326
  Serious: Yes (Life-Threatening, Hospitalization)
  Sender: FDA-Public Use
  Company Number: VAL_01161_2012

PATIENT
  Age: 66 Year
  Sex: Male

DRUGS (6)
  1. FUROSEMIDE (FUROSEMIDE) [Suspect]
     Active Substance: FUROSEMIDE
     Indication: PRODUCT USED FOR UNKNOWN INDICATION
     Dosage: (DF)
  2. ATORVASTATIN (UNKNOWN) [Concomitant]
     Active Substance: ATORVASTATIN
  3. SPIRONOLACTONE (SPIRONOLACTONE) [Suspect]
     Active Substance: SPIRONOLACTONE
     Indication: PRODUCT USED FOR UNKNOWN INDICATION
     Dosage: (DF)
  4. METOPROLOL TARTRATE. [Suspect]
     Active Substance: METOPROLOL TARTRATE
     Indication: PRODUCT USED FOR UNKNOWN INDICATION
     Dosage: (DF)
  5. LCZ696 [Suspect]
     Active Substance: INVESTIGATIONAL PRODUCT
     Indication: CARDIAC FAILURE CHRONIC
     Dosage: (CODE NOT BROKEN ORAL)
     Route: 048
     Dates: start: 20121127
  6. ACETYLSALICYLIC ACID [Concomitant]
     Active Substance: ASPIRIN

REACTIONS (5)
  - Hypotension [None]
  - Renal failure acute [None]
  - Fatigue [None]
  - Hyperkalaemia [None]
  - Dizziness [None]

NARRATIVE: CASE EVENT DATE: 20121127
